FAERS Safety Report 6135991-4 (Version None)
Quarter: 2009Q1

REPORT INFORMATION
  Report Type: 
  Country: None (occurrence: None)
  Receive Date: 20090329
  Receipt Date: 20081219
  Transmission Date: 20090719
  Serious: No
  Sender: FDA-Public Use
  Company Number: US-BAUSCH-2008BL005315

PATIENT
  Age: 90 Year
  Sex: Female

DRUGS (2)
  1. LOTEMAX [Suspect]
     Indication: EYE INFECTION
     Route: 047
     Dates: start: 20081201, end: 20081201
  2. LOTEMAX [Suspect]
     Indication: EYE IRRITATION
     Route: 047
     Dates: start: 20081201, end: 20081201

REACTIONS (2)
  - ANXIETY [None]
  - HEADACHE [None]
